FAERS Safety Report 8149022-8 (Version None)
Quarter: 2012Q1

REPORT INFORMATION
  Report Type: 
  Country: None (occurrence: None)
  Receive Date: 20120218
  Receipt Date: 20110812
  Transmission Date: 20120608
  Serious: No
  Sender: FDA-Public Use
  Company Number: US-ALLERGAN-1110886US

PATIENT
  Age: 45 Year
  Sex: Male

DRUGS (3)
  1. BOTOX COSMETIC [Suspect]
     Dosage: 10 UNITS, SINGLE
     Route: 030
  2. DYSPORT [Suspect]
     Indication: PRODUCT USED FOR UNKNOWN INDICATION
  3. BOTOX COSMETIC [Suspect]
     Indication: SKIN WRINKLING
     Dosage: 40 UNITS, SINGLE
     Route: 030
     Dates: start: 20101001, end: 20111001

REACTIONS (3)
  - NAUSEA [None]
  - FATIGUE [None]
  - DRUG INEFFECTIVE [None]
